FAERS Safety Report 17509733 (Version 2)
Quarter: 2020Q1

REPORT INFORMATION
  Report Type: Spontaneous
  Country: GB (occurrence: GB)
  Receive Date: 20200306
  Receipt Date: 20200326
  Transmission Date: 20200409
  Serious: Yes (Other)
  Sender: FDA-Public Use
  Company Number: GB-BAUSCH-BL-2020-006354

PATIENT
  Age: 70 Year
  Sex: Male

DRUGS (7)
  1. METHYLPREDNISOLONE. [Concomitant]
     Active Substance: METHYLPREDNISOLONE
     Indication: EYE DISORDER
     Route: 042
  2. DORZOLAMIDE AND TIMOLOL [Suspect]
     Active Substance: DORZOLAMIDE\TIMOLOL
     Indication: OCULAR HYPERTENSION
     Dosage: PRESERVED EYE DROPS
     Route: 061
  3. BRIMONIDINE [Suspect]
     Active Substance: BRIMONIDINE TARTRATE
     Indication: OCULAR HYPERTENSION
     Dosage: PRESERVED EYE DROPS
     Route: 061
  4. FOLIC ACID. [Concomitant]
     Active Substance: FOLIC ACID
     Indication: IDIOPATHIC ORBITAL INFLAMMATION
  5. LATANOPROST. [Suspect]
     Active Substance: LATANOPROST
     Indication: OCULAR HYPERTENSION
     Dosage: PRESERVED EYE DROPS, AT NIGHT
     Route: 061
  6. METHOTREXATE. [Concomitant]
     Active Substance: METHOTREXATE
     Indication: IDIOPATHIC ORBITAL INFLAMMATION
     Route: 048
  7. ACETAZOLAMIDE. [Concomitant]
     Active Substance: ACETAZOLAMIDE
     Indication: OCULAR HYPERTENSION
     Dosage: SLOW RELEASE
     Route: 048

REACTIONS (3)
  - Treatment noncompliance [Unknown]
  - Punctate keratitis [Recovered/Resolved with Sequelae]
  - Drug intolerance [Recovering/Resolving]
